FAERS Safety Report 4712637-0 (Version None)
Quarter: 2005Q3

REPORT INFORMATION
  Report Type: 
  Country: None (occurrence: None)
  Receive Date: 20050706
  Receipt Date: 20041214
  Transmission Date: 20060218
  Serious: Yes (Death, Life-Threatening, Hospitalization)
  Sender: FDA-Public Use
  Company Number: US-2004-028661

PATIENT
  Age: 80 Year
  Sex: Male

DRUGS (4)
  1. CAMPATH [Suspect]
     Indication: CHRONIC LYMPHOCYTIC LEUKAEMIA
     Dosage: 3/10/30MG, UNK
     Route: 065
     Dates: start: 20040301, end: 20040614
  2. BACTRIM [Concomitant]
  3. FAMVIR [Concomitant]
  4. UNSPECIFIED GROWTH FACTOR [Concomitant]

REACTIONS (3)
  - BONE MARROW DEPRESSION [None]
  - MYOCARDIAL INFARCTION [None]
  - PNEUMONIA BACTERIAL [None]
